FAERS Safety Report 4740308-3 (Version None)
Quarter: 2005Q3

REPORT INFORMATION
  Report Type: 
  Country: None (occurrence: None)
  Receive Date: 20050805
  Receipt Date: 20050725
  Transmission Date: 20060218
  Serious: Yes (Death)
  Sender: FDA-Public Use
  Company Number: GXKR2005RU01367

PATIENT
  Age: 8 Month
  Sex: Male
  Weight: 7.5 kg

DRUGS (1)
  1. LENDACIN (NGX) (CEFTRIAXONE), 500 MG [Suspect]
     Dosage: 67 MG/KG, INTRAVENOUS
     Route: 042
     Dates: start: 20050722

REACTIONS (1)
  - CARDIO-RESPIRATORY ARREST [None]
